FAERS Safety Report 15535853 (Version 3)
Quarter: 2018Q4

REPORT INFORMATION
  Report Type: Spontaneous
  Country: US (occurrence: US)
  Receive Date: 20181022
  Receipt Date: 20181204
  Transmission Date: 20190205
  Serious: No
  Sender: FDA-Public Use
  Company Number: US-PFIZER INC-2018426596

PATIENT
  Age: 72 Year
  Sex: Male

DRUGS (1)
  1. ADVIL PM [Suspect]
     Active Substance: DIPHENHYDRAMINE CITRATE\IBUPROFEN
     Indication: CHEST PAIN
     Dosage: 200 MG, AS NEEDED

REACTIONS (1)
  - Drug effect incomplete [Not Recovered/Not Resolved]
